FAERS Safety Report 6577759-0 (Version None)
Quarter: 2010Q1

REPORT INFORMATION
  Report Type: 
  Country: None (occurrence: None)
  Receive Date: 20100211
  Receipt Date: 20100202
  Transmission Date: 20100710
  Serious: Yes (Hospitalization)
  Sender: FDA-Public Use
  Company Number: RU-AMGEN-QUU389930

PATIENT
  Age: 53 Year
  Sex: Male

DRUGS (6)
  1. ARANESP [Suspect]
     Indication: ANAEMIA OF MALIGNANT DISEASE
     Route: 058
     Dates: start: 20091201, end: 20100113
  2. FLUDARABINE [Suspect]
     Indication: CHRONIC LYMPHOCYTIC LEUKAEMIA
  3. UNSPECIFIED MEDICATION [Concomitant]
  4. FILGRASTIM [Concomitant]
  5. MABTHERA [Concomitant]
  6. CYCLOPHOSPHAMIDE [Concomitant]

REACTIONS (1)
  - APLASIA PURE RED CELL [None]
